FAERS Safety Report 13354825 (Version 1)
Quarter: 2017Q1

REPORT INFORMATION
  Report Type: Spontaneous
  Country: DK (occurrence: DK)
  Receive Date: 20170321
  Receipt Date: 20170321
  Transmission Date: 20170429
  Serious: Yes (Life-Threatening, Hospitalization, Other)
  Sender: FDA-Public Use
  Company Number: DK-SUN PHARMACEUTICAL INDUSTRIES LTD-2016R1-111123

PATIENT
  Age: 26 Year
  Sex: Male

DRUGS (5)
  1. DECA (NANDROLONE DECANOATE) [Suspect]
     Active Substance: NANDROLONE DECANOATE
     Indication: PRODUCT USED FOR UNKNOWN INDICATION
     Dosage: UNK
     Route: 065
  2. OXYMETHOLONE [Suspect]
     Active Substance: OXYMETHOLONE
     Indication: PRODUCT USED FOR UNKNOWN INDICATION
     Dosage: UNK
     Route: 065
  3. ERYTHROPOIETIN [Suspect]
     Active Substance: ERYTHROPOIETIN
     Indication: PRODUCT USED FOR UNKNOWN INDICATION
     Dosage: UNK
     Route: 065
  4. TESTOSTERONE. [Suspect]
     Active Substance: TESTOSTERONE
     Indication: PRODUCT USED FOR UNKNOWN INDICATION
     Dosage: UNK
     Route: 065
  5. EPITESTOSTERONE [Suspect]
     Active Substance: EPITESTOSTERONE
     Indication: PRODUCT USED FOR UNKNOWN INDICATION
     Dosage: UNK
     Route: 065

REACTIONS (15)
  - Anuria [Unknown]
  - Renal failure [Unknown]
  - Hypercalcaemia [Unknown]
  - Pleural effusion [Unknown]
  - Substance abuse [Unknown]
  - Pneumonia [Unknown]
  - Embolism [Unknown]
  - Gastritis haemorrhagic [Unknown]
  - Multiple organ dysfunction syndrome [Unknown]
  - Pancreatitis [Unknown]
  - Cardiomyopathy [Unknown]
  - Haematemesis [Unknown]
  - Respiratory failure [Unknown]
  - Hypertensive crisis [Recovered/Resolved]
  - Lactic acidosis [Unknown]
